FAERS Safety Report 11808295 (Version 1)
Quarter: 2015Q4

REPORT INFORMATION
  Report Type: Spontaneous
  Country: US (occurrence: US)
  Receive Date: 20151207
  Receipt Date: 20151207
  Transmission Date: 20160305
  Serious: No
  Sender: FDA-Public Use
  Company Number: US-TAKEDA-2015TUS017448

PATIENT
  Sex: Female
  Weight: 60.77 kg

DRUGS (5)
  1. ENTYVIO [Suspect]
     Active Substance: VEDOLIZUMAB
     Indication: COLITIS ULCERATIVE
     Dosage: UNK
     Route: 042
     Dates: start: 20151123
  2. UCERIS [Concomitant]
     Active Substance: BUDESONIDE
     Dosage: 6 UNK, UNK
     Route: 048
     Dates: start: 20151202
  3. ORSYTHIA [Concomitant]
     Active Substance: ETHINYL ESTRADIOL\LEVONORGESTREL
     Indication: CONTRACEPTION
     Dosage: UNK, QD
     Route: 048
     Dates: start: 201412
  4. ZYRTEC [Concomitant]
     Active Substance: CETIRIZINE HYDROCHLORIDE
     Indication: URTICARIA
     Dosage: UNK, QD
     Route: 048
  5. UCERIS [Concomitant]
     Active Substance: BUDESONIDE
     Indication: COLITIS ULCERATIVE
     Dosage: 9 MG, QD
     Route: 048
     Dates: start: 201510, end: 20151201

REACTIONS (4)
  - Nausea [Unknown]
  - Feeling of body temperature change [Unknown]
  - Fatigue [Unknown]
  - Infectious mononucleosis [Unknown]
